FAERS Safety Report 4284231-X (Version None)
Quarter: 2004Q1

REPORT INFORMATION
  Report Type: 
  Country: None (occurrence: None)
  Receive Date: 20040203
  Receipt Date: 20031215
  Transmission Date: 20041129
  Serious: Yes (Other)
  Sender: FDA-Public Use
  Company Number: GB-ROCHE-353954

PATIENT
  Age: 63 Year
  Sex: Female
  Weight: 69 kg

DRUGS (1)
  1. XENICAL [Suspect]
     Indication: OBESITY
     Route: 048
     Dates: start: 20030215, end: 20031205

REACTIONS (6)
  - DIARRHOEA [None]
  - DIVERTICULUM [None]
  - HAEMATOCHEZIA [None]
  - LOOSE STOOLS [None]
  - MELAENA [None]
  - RECTAL HAEMORRHAGE [None]
